FAERS Safety Report 12909320 (Version 4)
Quarter: 2017Q2

REPORT INFORMATION
  Report Type: Report from Study
  Country: US (occurrence: US)
  Receive Date: 20161104
  Receipt Date: 20170627
  Transmission Date: 20170830
  Serious: Yes (Other)
  Sender: FDA-Public Use
  Company Number: PHEH2016US028325

PATIENT
  Age: 47 Year
  Sex: Female

DRUGS (3)
  1. HUMIRA [Suspect]
     Active Substance: ADALIMUMAB
     Indication: ANKYLOSING SPONDYLITIS
     Route: 058
  2. COSENTYX [Suspect]
     Active Substance: SECUKINUMAB
     Indication: ANKYLOSING SPONDYLITIS
     Dosage: 150 MG, QW
     Route: 058
     Dates: start: 20161019
  3. COSENTYX [Suspect]
     Active Substance: SECUKINUMAB
     Dosage: 150 MG, QW
     Route: 058
     Dates: start: 20161026

REACTIONS (11)
  - Fibromyalgia [Unknown]
  - Insomnia [Unknown]
  - Asthenia [Unknown]
  - Diarrhoea haemorrhagic [Recovering/Resolving]
  - Haematochezia [Recovered/Resolved]
  - Fatigue [Unknown]
  - Epistaxis [Unknown]
  - Device difficult to use [Not Recovered/Not Resolved]
  - Dementia Alzheimer^s type [Unknown]
  - Arthralgia [Unknown]
  - Haemoptysis [Unknown]

NARRATIVE: CASE EVENT DATE: 201609
